FAERS Safety Report 15269059 (Version 5)
Quarter: 2020Q4

REPORT INFORMATION
  Report Type: Report from Study
  Country: JP (occurrence: JP)
  Receive Date: 20180813
  Receipt Date: 20201207
  Transmission Date: 20210113
  Serious: Yes (Death, Hospitalization, Other)
  Sender: FDA-Public Use
  Company Number: JP-009507513-1807JPN001540J

PATIENT
  Age: 61 Year
  Sex: Male
  Weight: 60 kg

DRUGS (32)
  1. LETERMOVIR [Suspect]
     Active Substance: LETERMOVIR
     Indication: ANTIVIRAL PROPHYLAXIS
     Dosage: 480 MILLIGRAM, QD
     Route: 041
     Dates: start: 20180529, end: 20180713
  2. SOLDEM 3A [Concomitant]
     Active Substance: CARBOHYDRATES\POTASSIUM CHLORIDE\SODIUM CHLORIDE\SODIUM LACTATE
     Dosage: 500 MILLIGRAM, QD
     Route: 051
     Dates: start: 20180622, end: 20180711
  3. TERPERAN [Concomitant]
     Active Substance: METOCLOPRAMIDE HYDROCHLORIDE
     Dosage: UNK, BID
     Route: 051
     Dates: start: 20180613, end: 20180614
  4. TERPERAN [Concomitant]
     Active Substance: METOCLOPRAMIDE HYDROCHLORIDE
     Dosage: UNK, QD
     Route: 051
     Dates: start: 20180621, end: 20180621
  5. MYCOPHENOLATE MOFETIL. [Concomitant]
     Active Substance: MYCOPHENOLATE MOFETIL
     Dosage: 500 MILLIGRAM, BID
     Route: 048
     Dates: start: 20180629, end: 20180702
  6. PROGRAF [Concomitant]
     Active Substance: TACROLIMUS
     Indication: IMMUNOSUPPRESSION
     Dosage: 0.5~1.7MG, QD
     Route: 051
     Dates: start: 20180603, end: 20180828
  7. TAKEPRON [Concomitant]
     Active Substance: LANSOPRAZOLE
     Dosage: 30 MILLIGRAM, BID
     Route: 051
     Dates: start: 20180531, end: 20180806
  8. ISOTONIC SODIUM CHLORIDE SOLUTION HIKARI [Concomitant]
     Indication: FLUID REPLACEMENT
     Dosage: 500 MILLILITER, BID
     Route: 051
     Dates: start: 20180601, end: 20180605
  9. ISOTONIC SODIUM CHLORIDE SOLUTION HIKARI [Concomitant]
     Dosage: 500 MILLILITER, QD
     Route: 051
     Dates: start: 20180606, end: 20180806
  10. TERPERAN [Concomitant]
     Active Substance: METOCLOPRAMIDE HYDROCHLORIDE
     Dosage: UNK, BID
     Route: 051
     Dates: start: 20180617, end: 20180617
  11. ACICLOVIR [Concomitant]
     Active Substance: ACYCLOVIR
     Indication: ANTIVIRAL PROPHYLAXIS
     Dosage: 250~500MG/DAY
     Route: 051
     Dates: start: 20180531, end: 20180625
  12. LETERMOVIR [Suspect]
     Active Substance: LETERMOVIR
     Dosage: 240 MILLIGRAM, QD
     Route: 041
     Dates: start: 20180714, end: 20180716
  13. FULCALIQ [Concomitant]
     Active Substance: AMINO ACIDS\CARBOHYDRATES\ELECTROLYTES NOS\VITAMINS
     Indication: FLUID REPLACEMENT
     Dosage: 1003 MILLILITER, BID
     Route: 051
     Dates: start: 20180606, end: 20180709
  14. ACELIO [Concomitant]
     Active Substance: ACETAMINOPHEN
     Indication: PAIN
     Dosage: UNK, PRN
     Route: 051
     Dates: start: 20180624, end: 20180624
  15. GENTACIN [Concomitant]
     Active Substance: GENTAMICIN SULFATE
     Indication: ANAL FISTULA
     Dosage: UNK
     Route: 003
     Dates: start: 20180526, end: 20180806
  16. TERPERAN [Concomitant]
     Active Substance: METOCLOPRAMIDE HYDROCHLORIDE
     Dosage: UNK, QD
     Route: 051
     Dates: start: 20180601, end: 20180601
  17. TERPERAN [Concomitant]
     Active Substance: METOCLOPRAMIDE HYDROCHLORIDE
     Dosage: UNK, BID
     Route: 051
     Dates: start: 20180611, end: 20180611
  18. TERPERAN [Concomitant]
     Active Substance: METOCLOPRAMIDE HYDROCHLORIDE
     Dosage: UNK, QD
     Route: 051
     Dates: start: 20180623, end: 20180624
  19. MORPHINE HYDROCHLORIDE HYDRATE [Concomitant]
     Active Substance: MORPHINE HYDROCHLORIDE
     Indication: PAIN
     Dosage: 1A/1-2DAY
     Route: 051
     Dates: start: 20180610, end: 20180626
  20. TERPERAN [Concomitant]
     Active Substance: METOCLOPRAMIDE HYDROCHLORIDE
     Dosage: UNK, TID
     Route: 051
     Dates: start: 20180612, end: 20180612
  21. TERPERAN [Concomitant]
     Active Substance: METOCLOPRAMIDE HYDROCHLORIDE
     Dosage: UNK, QD
     Route: 051
     Dates: start: 20180628, end: 20180629
  22. AZUNOL [Concomitant]
     Indication: ANAL FISTULA
     Dosage: UNK
     Route: 003
     Dates: start: 20180526, end: 20180806
  23. MYCOPHENOLATE MOFETIL. [Concomitant]
     Active Substance: MYCOPHENOLATE MOFETIL
     Indication: PROPHYLAXIS AGAINST GRAFT VERSUS HOST DISEASE
     Dosage: 9:00 1000MG, 21:00 750MG
     Route: 048
     Dates: start: 20180603, end: 20180628
  24. MYCOPHENOLATE MOFETIL. [Concomitant]
     Active Substance: MYCOPHENOLATE MOFETIL
     Dosage: 250 MILLIGRAM, BID,AT 9:00,21:00
     Route: 048
     Dates: start: 20180703, end: 20180705
  25. PROGRAF [Concomitant]
     Active Substance: TACROLIMUS
     Indication: PROPHYLAXIS
  26. TERPERAN [Concomitant]
     Active Substance: METOCLOPRAMIDE HYDROCHLORIDE
     Dosage: UNK, BID
     Route: 051
     Dates: start: 20180625, end: 20180625
  27. TERPERAN [Concomitant]
     Active Substance: METOCLOPRAMIDE HYDROCHLORIDE
     Dosage: UNK, TID
     Route: 051
     Dates: start: 20180627, end: 20180627
  28. TERPERAN [Concomitant]
     Active Substance: METOCLOPRAMIDE HYDROCHLORIDE
     Dosage: UNK, BID
     Route: 051
     Dates: start: 20180630, end: 20180630
  29. FUNGUARD [Concomitant]
     Active Substance: MICAFUNGIN SODIUM
     Indication: INFECTION PROPHYLAXIS
     Dosage: UNK
     Route: 051
     Dates: start: 20180526, end: 20180806
  30. SOLDEM 3A [Concomitant]
     Active Substance: CARBOHYDRATES\POTASSIUM CHLORIDE\SODIUM CHLORIDE\SODIUM LACTATE
     Indication: FLUID REPLACEMENT
     Dosage: 500 MILLILITER, QID
     Route: 051
     Dates: start: 20180601, end: 20180604
  31. TERPERAN [Concomitant]
     Active Substance: METOCLOPRAMIDE HYDROCHLORIDE
     Dosage: UNK, QD
     Route: 051
     Dates: start: 20180609, end: 20180609
  32. TERPERAN [Concomitant]
     Active Substance: METOCLOPRAMIDE HYDROCHLORIDE
     Dosage: UNK, QD
     Route: 051
     Dates: start: 20180615, end: 20180615

REACTIONS (5)
  - Acute graft versus host disease in intestine [Recovering/Resolving]
  - Nausea [Unknown]
  - Acute lymphocytic leukaemia recurrent [Unknown]
  - Altered state of consciousness [Fatal]
  - Incorrect dose administered [Unknown]

NARRATIVE: CASE EVENT DATE: 2018
